FAERS Safety Report 13781690 (Version 1)
Quarter: 2017Q3

REPORT INFORMATION
  Report Type: Spontaneous
  Country: AU (occurrence: AU)
  Receive Date: 20170724
  Receipt Date: 20170724
  Transmission Date: 20171127
  Serious: Yes (Other)
  Sender: FDA-Public Use
  Company Number: AU-PFIZER INC-3115987

PATIENT
  Age: 21 Year
  Sex: Male
  Weight: 93.1 kg

DRUGS (2)
  1. MAGNESIUM SULFATE. [Suspect]
     Active Substance: MAGNESIUM SULFATE
     Indication: CHEMOTHERAPY
     Dosage: 2.47GRAM IN 5 ML, FREQ: CYCLICAL
     Route: 042
     Dates: start: 20151215, end: 20151215
  2. NORMAL SALINE [Concomitant]
     Active Substance: SODIUM CHLORIDE
     Indication: FLUID REPLACEMENT
     Dosage: 1000 ML, UNK
     Dates: start: 20151215

REACTIONS (2)
  - Micturition urgency [Recovered/Resolved]
  - Hypersensitivity [Recovered/Resolved]

NARRATIVE: CASE EVENT DATE: 20151215
